FAERS Safety Report 9948739 (Version 2)
Quarter: 2014Q2

REPORT INFORMATION
  Report Type: Spontaneous
  Country: BE (occurrence: BE)
  Receive Date: 20140304
  Receipt Date: 20140415
  Transmission Date: 20141212
  Serious: Yes (Hospitalization, Other)
  Sender: FDA-Public Use
  Company Number: BE-AMGEN-BELSP2014014920

PATIENT
  Age: 60 Year
  Sex: Male

DRUGS (13)
  1. ENBREL [Suspect]
     Indication: ANKYLOSING SPONDYLITIS
     Dosage: 50 MG, QWK
     Route: 058
     Dates: start: 20131115, end: 20131218
  2. SEROQUEL [Concomitant]
     Dosage: 800 MG, DAILY
     Route: 048
     Dates: end: 20131227
  3. DEPAKINE CHRONO [Concomitant]
     Dosage: 500 MG, 3X/DAY
     Route: 048
     Dates: end: 20131227
  4. ASAFLOW [Concomitant]
     Dosage: 80 MG, 1X/DAY
     Route: 048
     Dates: end: 20131227
  5. ALDACTONE                          /00006201/ [Concomitant]
     Dosage: 25 MG, 1X/DAY
     Route: 048
     Dates: end: 20131227
  6. INVEGA SUSTENNA [Concomitant]
     Dosage: 3 MG, 1X/DAY
     Route: 048
     Dates: end: 20131227
  7. LORMETAZEPAM [Concomitant]
     Dosage: 2 MG, 1X/DAY
     Route: 048
     Dates: end: 20131227
  8. DOMINAL                            /00018902/ [Concomitant]
     Dosage: 40 MG, 1X/DAY
     Route: 048
     Dates: end: 20131227
  9. NICOTIBINE [Concomitant]
     Dosage: 300 MG, 1X/DAY
     Route: 048
     Dates: start: 20131015
  10. PYRIDOXINE [Concomitant]
     Dosage: 250 MG, 1X/DAY
     Route: 048
     Dates: start: 20131015
  11. RIVOTRIL [Concomitant]
     Dosage: 12.5 MG, UNK
     Route: 048
     Dates: end: 20131227
  12. VENLAFAXINE [Concomitant]
     Dosage: 2 MG, UNK
     Route: 048
  13. LIORESAL [Concomitant]
     Dosage: 3 MG, UNK
     Route: 048

REACTIONS (15)
  - Herpes zoster meningoencephalitis [Recovered/Resolved]
  - Altered state of consciousness [Recovered/Resolved]
  - Renal failure acute [Recovered/Resolved]
  - Epilepsy [Recovered/Resolved]
  - Bronchial obstruction [Recovered/Resolved]
  - Atrial fibrillation [Recovered/Resolved]
  - Gout [Recovering/Resolving]
  - Dysphonia [Recovering/Resolving]
  - Hypertension [Unknown]
  - Tracheal pain [Unknown]
  - Cerebral atrophy [Unknown]
  - Pseudomonal sepsis [Recovered/Resolved]
  - Respiratory tract infection [Unknown]
  - Lung infection [Recovered/Resolved]
  - Ophthalmic herpes zoster [Recovered/Resolved]
